FAERS Safety Report 8625962-8 (Version None)
Quarter: 2012Q3

REPORT INFORMATION
  Report Type: 
  Country: None (occurrence: None)
  Receive Date: 20120827
  Receipt Date: 19880926
  Transmission Date: 20120928
  Serious: Yes (Death)
  Sender: FDA-Public Use
  Company Number: US-ROCHE-CID000000002050551

PATIENT
  Sex: Male

DRUGS (8)
  1. ATROPINE [Concomitant]
  2. LIDOCAINE [Concomitant]
  3. HEPARIN [Concomitant]
     Dosage: 5 000 1 ML
  4. ACTIVASE [Suspect]
     Indication: MYOCARDIAL INFARCTION
  5. CALCIUM GLUCONATE [Concomitant]
  6. DOPAMINE HCL [Concomitant]
  7. SODIUM BICARBONATE [Concomitant]
  8. EPINEPHRINE [Concomitant]

REACTIONS (2)
  - VENTRICULAR FIBRILLATION [None]
  - ACUTE MYOCARDIAL INFARCTION [None]
